FAERS Safety Report 20932574 (Version 2)
Quarter: 2022Q3

REPORT INFORMATION
  Report Type: Spontaneous
  Country: RU (occurrence: RU)
  Receive Date: 20220608
  Receipt Date: 20220728
  Transmission Date: 20221026
  Serious: Yes (Other)
  Sender: FDA-Public Use
  Company Number: RU-PFIZER INC-202200768186

PATIENT
  Age: 2 Year
  Sex: Female

DRUGS (9)
  1. RITUXIMAB [Suspect]
     Active Substance: RITUXIMAB
     Dosage: 375 MG/M2, WEEKLY,FOUR TIMES
  2. CYCLOSPORINE [Suspect]
     Active Substance: CYCLOSPORINE
     Dosage: UNK
  3. TREOSULFAN [Suspect]
     Active Substance: TREOSULFAN
     Dosage: 36G/M2
  4. FLUDARABINE [Suspect]
     Active Substance: FLUDARABINE PHOSPHATE
     Dosage: 150MG/M2
  5. ALEMTUZUMAB [Suspect]
     Active Substance: ALEMTUZUMAB
     Dosage: 1MG/KG
  6. MYCOPHENOLATE MOFETIL [Suspect]
     Active Substance: MYCOPHENOLATE MOFETIL
     Dosage: UNK
  7. CYCLOPHOSPHAMIDE [Suspect]
     Active Substance: CYCLOPHOSPHAMIDE
     Dosage: UNK
  8. VINCRISTINE [Suspect]
     Active Substance: VINCRISTINE
     Dosage: UNK
  9. PREDNISOLONE [Suspect]
     Active Substance: PREDNISOLONE
     Dosage: UNK

REACTIONS (6)
  - Acute graft versus host disease [Unknown]
  - Enterococcal infection [Unknown]
  - Post transplant lymphoproliferative disorder [Unknown]
  - Adenovirus infection [Unknown]
  - Epstein-Barr viraemia [Unknown]
  - Drug ineffective [Unknown]
